FAERS Safety Report 12563716 (Version 1)
Quarter: 2016Q3

REPORT INFORMATION
  Report Type: Spontaneous
  Country: DE (occurrence: DE)
  Receive Date: 20160716
  Receipt Date: 20160716
  Transmission Date: 20161109
  Serious: Yes (Congenital Anomaly, Other)
  Sender: FDA-Public Use
  Company Number: DE-HETERO LABS LTD-1055129

PATIENT
  Age: 1 Day
  Sex: Female

DRUGS (7)
  1. L-THYROXIN [Concomitant]
     Active Substance: LEVOTHYROXINE SODIUM
     Route: 064
     Dates: start: 20150310, end: 20151119
  2. CYTOTEC [Concomitant]
     Active Substance: MISOPROSTOL
     Dates: start: 20151119, end: 20151119
  3. AMPICILLIN SODIUM. [Concomitant]
     Active Substance: AMPICILLIN SODIUM
     Dates: start: 20151119, end: 20151119
  4. ESCITALOPRAM [Suspect]
     Active Substance: ESCITALOPRAM OXALATE
     Indication: DEPRESSION
     Route: 064
     Dates: start: 20150310, end: 20151119
  5. DECORTIN-H [Suspect]
     Active Substance: PREDNISOLONE HEMISUCCINATE
     Route: 064
  6. DEKRISTOL [Concomitant]
     Active Substance: CHOLECALCIFEROL
     Dates: start: 20150310, end: 20150413
  7. FEMIBION [Concomitant]
     Active Substance: VITAMINS

REACTIONS (6)
  - Exposure during pregnancy [Unknown]
  - Bradycardia neonatal [Recovered/Resolved]
  - Congenital hydronephrosis [Unknown]
  - Respiratory disorder neonatal [Recovered/Resolved]
  - Premature baby [Unknown]
  - Kidney duplex [Not Recovered/Not Resolved]

NARRATIVE: CASE EVENT DATE: 20151119
